FAERS Safety Report 7805975-6 (Version None)
Quarter: 2011Q4

REPORT INFORMATION
  Report Type: 
  Country: None (occurrence: None)
  Receive Date: 20111007
  Receipt Date: 20111007
  Transmission Date: 20120403
  Serious: Yes (Hospitalization)
  Sender: FDA-Public Use
  Company Number: None

PATIENT
  Age: 89 Year
  Sex: Female
  Weight: 45.18 kg

DRUGS (19)
  1. PREDNISONE [Concomitant]
  2. MORPHINE [Concomitant]
  3. CALCIUM CARBONATE [Concomitant]
  4. MULTI-VITAMIN [Concomitant]
  5. TYLENOL-500 [Concomitant]
  6. ATROVENT [Concomitant]
  7. LOVENOX [Suspect]
     Indication: FRACTURE TREATMENT
     Dosage: 40 MG DAILY SQ
     Route: 058
  8. PLAVIX [Concomitant]
  9. DIGOXIN [Concomitant]
  10. PERCOCET [Concomitant]
  11. DI;CP;AR [Concomitant]
  12. PHENEGON [Concomitant]
  13. METOPROLOL TARTRATE [Concomitant]
  14. GABAPENTIN [Concomitant]
  15. THIAMINE HCL [Concomitant]
  16. MIRALAX [Concomitant]
  17. SENNA [Concomitant]
  18. PRADAXA [Suspect]
     Indication: ATRIAL FIBRILLATION
     Dosage: 75MG BID PO
     Route: 048
  19. LEXAPRO [Concomitant]

REACTIONS (1)
  - UPPER GASTROINTESTINAL HAEMORRHAGE [None]
